FAERS Safety Report 8523506 (Version 3)
Quarter: 2012Q4

REPORT INFORMATION
  Report Type: 
  Country: FR (occurrence: FR)
  Receive Date: 20120420
  Receipt Date: 20121012
  Transmission Date: 20130627
  Serious: Yes (Death, Life-Threatening, Hospitalization)
  Sender: FDA-Public Use
  Company Number: PHHY2012FR033156

PATIENT
  Age: 80 None
  Sex: Male
  Weight: 92 kg

DRUGS (3)
  1. GLIVEC [Suspect]
     Indication: CHRONIC MYELOID LEUKAEMIA
     Dosage: 400 mg daily
     Route: 048
     Dates: start: 20120229, end: 20120413
  2. NEUPOGEN [Suspect]
     Indication: LEUKOPENIA
     Dosage: UNK UKN, UNK
     Dates: start: 201204, end: 201204
  3. PRINZIDE [Concomitant]
     Indication: HYPERTENSION
     Dosage: 1 DF, Daily
     Route: 048

REACTIONS (12)
  - Lung disorder [Fatal]
  - Acute respiratory distress syndrome [Unknown]
  - Dyspnoea [Unknown]
  - Tachypnoea [Unknown]
  - Lung infection [Unknown]
  - Chronic myeloid leukaemia [Unknown]
  - Rash [Unknown]
  - Leukopenia [Unknown]
  - Renal failure [Unknown]
  - Thrombocytopenia [Unknown]
  - Anaemia [Unknown]
  - Interstitial lung disease [Unknown]
